FAERS Safety Report 7888135-2 (Version None)
Quarter: 2011Q4

REPORT INFORMATION
  Report Type: 
  Country: None (occurrence: None)
  Receive Date: 20111101
  Receipt Date: 20111024
  Transmission Date: 20120403
  Serious: Yes (Hospitalization)
  Sender: FDA-Public Use
  Company Number: 2011SP035049

PATIENT
  Age: 40 Year
  Sex: Female

DRUGS (5)
  1. PUREGON (FOLLIOTROPIN BETA /01348901/) (50 IU) [Suspect]
     Indication: INFERTILITY
     Dosage: 200 IU;QD;SC ; 225 IU;QD;SC
     Route: 058
     Dates: start: 20110601, end: 20110604
  2. PUREGON (FOLLIOTROPIN BETA /01348901/) (50 IU) [Suspect]
     Indication: INFERTILITY
     Dosage: 200 IU;QD;SC ; 225 IU;QD;SC
     Route: 058
     Dates: start: 20110605
  3. OVITRELLE (CHORIOGONADOTROPHIN ALFA) [Suspect]
     Indication: INFERTILITY
     Dosage: 250 MG;ONCE;SC
     Route: 058
     Dates: start: 20110612, end: 20110612
  4. GANIRELIX ACETATE INJECTION [Suspect]
     Indication: INFERTILITY
     Dosage: 0.25 MG;SC
     Route: 058
     Dates: start: 20110607, end: 20110612
  5. LUVERIS [Suspect]
     Indication: INFERTILITY
     Dosage: 75 IU;SC
     Route: 058
     Dates: start: 20110601, end: 20110609

REACTIONS (1)
  - OVARIAN HYPERSTIMULATION SYNDROME [None]
